FAERS Safety Report 9969909 (Version 1)
Quarter: 2014Q1

REPORT INFORMATION
  Report Type: Spontaneous
  Country: US (occurrence: None)
  Receive Date: 20140305
  Receipt Date: 20140305
  Transmission Date: 20141002
  Serious: Yes (Death)
  Sender: FDA-Public Use
  Company Number: None

PATIENT
  Age: 63 Year
  Sex: Male
  Weight: 98.88 kg

DRUGS (5)
  1. LYRICA [Suspect]
     Indication: PAIN
     Dosage: 1 DOSE TID ORAL
     Route: 048
     Dates: start: 20130924, end: 20140223
  2. LYRICA [Suspect]
     Indication: NEURALGIA
     Dosage: 1 DOSE TID ORAL
     Route: 048
     Dates: start: 20130924, end: 20140223
  3. OXYCODONE [Concomitant]
  4. ALPRAZOLAM [Concomitant]
  5. FERROUS SULFATE [Concomitant]

REACTIONS (1)
  - Completed suicide [None]
